FAERS Safety Report 4521660-0 (Version None)
Quarter: 2004Q4

REPORT INFORMATION
  Report Type: 
  Country: None (occurrence: None)
  Receive Date: 20041206
  Receipt Date: 20041124
  Transmission Date: 20050328
  Serious: Yes (Disabling)
  Sender: FDA-Public Use
  Company Number: 2004UW24114

PATIENT
  Age: 50 Year
  Sex: Female
  Weight: 99.3377 kg

DRUGS (4)
  1. PLENDIL [Suspect]
     Indication: HYPERTENSION
     Dosage: 10 MG QD PO
     Route: 048
     Dates: start: 20020501, end: 20040901
  2. ASPIRIN [Concomitant]
  3. LIPITOR [Concomitant]
  4. NO MATCH [Concomitant]

REACTIONS (2)
  - GINGIVAL HYPERPLASIA [None]
  - SQUAMOUS CELL CARCINOMA [None]
